FAERS Safety Report 10607497 (Version 1)
Quarter: 2014Q4

REPORT INFORMATION
  Report Type: Spontaneous
  Country: US (occurrence: None)
  Receive Date: 20141124
  Receipt Date: 20141124
  Transmission Date: 20150529
  Serious: Yes (Hospitalization)
  Sender: FDA-Public Use
  Company Number: None

PATIENT
  Age: 69 Year
  Sex: Male
  Weight: 101.6 kg

DRUGS (10)
  1. AMARYL [Suspect]
     Active Substance: GLIMEPIRIDE
     Indication: DIABETES MELLITUS
     Dosage: CHRONIC
     Route: 048
  2. ALLOPURINOL. [Concomitant]
     Active Substance: ALLOPURINOL
  3. COREG [Concomitant]
     Active Substance: CARVEDILOL
  4. METOLAZONE. [Concomitant]
     Active Substance: METOLAZONE
  5. PAXIL [Concomitant]
     Active Substance: PAROXETINE HYDROCHLORIDE
  6. ZAROXOLYN [Concomitant]
     Active Substance: METOLAZONE
  7. BUMEX [Concomitant]
     Active Substance: BUMETANIDE
  8. METFORMIN [Concomitant]
     Active Substance: METFORMIN HYDROCHLORIDE
  9. KLOR-CON [Concomitant]
     Active Substance: POTASSIUM CHLORIDE
  10. ASA [Concomitant]
     Active Substance: ASPIRIN

REACTIONS (5)
  - Acute kidney injury [None]
  - Decreased appetite [None]
  - Pneumonia [None]
  - Hypoglycaemia [None]
  - Liver disorder [None]

NARRATIVE: CASE EVENT DATE: 20140630
